FAERS Safety Report 14323212 (Version 1)
Quarter: 2017Q4

REPORT INFORMATION
  Report Type: Report from Study
  Country: US (occurrence: US)
  Receive Date: 20171226
  Receipt Date: 20171226
  Transmission Date: 20180321
  Serious: Yes (Other)
  Sender: FDA-Public Use
  Company Number: US-INGENUS PHARMACEUTICALS, LLC-INF201712-000720

PATIENT

DRUGS (1)
  1. CARBOPLATIN. [Suspect]
     Active Substance: CARBOPLATIN
     Indication: BLADDER TRANSITIONAL CELL CARCINOMA

REACTIONS (2)
  - Product use in unapproved indication [Unknown]
  - Haematuria [Unknown]
